FAERS Safety Report 11051589 (Version 1)
Quarter: 2015Q2

REPORT INFORMATION
  Report Type: Spontaneous
  Country: ES (occurrence: ES)
  Receive Date: 20150421
  Receipt Date: 20150421
  Transmission Date: 20150821
  Serious: Yes (Other)
  Sender: FDA-Public Use
  Company Number: ES-MALLINCKRODT-T201502006

PATIENT
  Age: 39 Year
  Sex: Female

DRUGS (1)
  1. OPTIRAY [Suspect]
     Active Substance: IOVERSOL
     Indication: ANGIOGRAM
     Dosage: UNK, SINGLE DOSE
     Route: 065

REACTIONS (3)
  - Caesarean section [Unknown]
  - General physical health deterioration [Unknown]
  - Exposure during pregnancy [Unknown]
